FAERS Safety Report 12541150 (Version 1)
Quarter: 2016Q3

REPORT INFORMATION
  Report Type: Not Available
  Country: None (occurrence: US)
  Receive Date: 20160708
  Receipt Date: 20160708
  Transmission Date: 20161109
  Serious: Yes (Hospitalization)
  Sender: FDA-Public Use
  Company Number: US-AKORN-34588

PATIENT
  Age: 61 Year
  Sex: Male
  Weight: 103 kg

DRUGS (1)
  1. ACETAMINOPHEN AND CODEINE PHOSPHATE ORAL SOLUTION, USP [Suspect]
     Active Substance: ACETAMINOPHEN\CODEINE PHOSPHATE

REACTIONS (6)
  - Rash erythematous [None]
  - Neck pain [None]
  - Swelling [None]
  - Pain [None]
  - Urticaria [None]
  - Fatigue [None]
